FAERS Safety Report 4444847-4 (Version None)
Quarter: 2004Q3

REPORT INFORMATION
  Report Type: 
  Country: None (occurrence: None)
  Receive Date: 20040907
  Receipt Date: 20040907
  Transmission Date: 20050211
  Serious: No
  Sender: FDA-Public Use
  Company Number: None

PATIENT
  Age: 33 Year
  Sex: Female

DRUGS (1)
  1. PREDNISOLONE [Suspect]

REACTIONS (3)
  - IRITIS [None]
  - PHARMACEUTICAL PRODUCT COMPLAINT [None]
  - THERAPY NON-RESPONDER [None]
